FAERS Safety Report 18596460 (Version 3)
Quarter: 2021Q1

REPORT INFORMATION
  Report Type: Spontaneous
  Country: US (occurrence: US)
  Receive Date: 20201209
  Receipt Date: 20210211
  Transmission Date: 20210419
  Serious: Yes (Death)
  Sender: FDA-Public Use
  Company Number: US-ELI_LILLY_AND_COMPANY-US202012003552

PATIENT
  Age: 61 Year
  Sex: Female
  Weight: 89.43 kg

DRUGS (1)
  1. TRULICITY [Suspect]
     Active Substance: DULAGLUTIDE
     Indication: PRODUCT USED FOR UNKNOWN INDICATION
     Dosage: 1.5 MG, WEEKLY (1/W)
     Route: 058
     Dates: start: 20160505

REACTIONS (3)
  - Gastritis [Unknown]
  - Gastric ulcer perforation [Unknown]
  - Death [Fatal]

NARRATIVE: CASE EVENT DATE: 20200801
